FAERS Safety Report 25766390 (Version 1)
Quarter: 2025Q3

REPORT INFORMATION
  Report Type: Spontaneous
  Country: US (occurrence: None)
  Receive Date: 20250905
  Receipt Date: 20250905
  Transmission Date: 20251021
  Serious: No
  Sender: FDA-CTU
  Company Number: None

PATIENT

DRUGS (3)
  1. CEFPODOXIME [Suspect]
     Active Substance: CEFPODOXIME
  2. cyproterone acetate/diane 35 [Concomitant]
  3. hydrolyzed collage +vitamin c [Concomitant]

REACTIONS (1)
  - Vulvovaginal pruritus [None]
